FAERS Safety Report 24374150 (Version 1)
Quarter: 2024Q3

REPORT INFORMATION
  Report Type: Spontaneous
  Country: US (occurrence: None)
  Receive Date: 20240927
  Receipt Date: 20240927
  Transmission Date: 20241017
  Serious: No
  Sender: Public
  Company Number: None

PATIENT
  Age: 65 Year
  Sex: Male
  Weight: 79.65 kg

DRUGS (8)
  1. FAMOTIDINE [Suspect]
     Active Substance: FAMOTIDINE
     Indication: Gastrooesophageal reflux disease
     Dosage: 1 TABLET AS NEEDED ORAL ?
     Route: 048
  2. Viagra 25 mgs [Concomitant]
  3. Quercitine [Concomitant]
  4. VITAMIN D3 [Concomitant]
  5. ZINC [Concomitant]
     Active Substance: ZINC
  6. VITAMIN C [Concomitant]
     Active Substance: ASCORBIC ACID
  7. MAGNESIUM [Concomitant]
     Active Substance: MAGNESIUM
  8. BIOTIN [Concomitant]
     Active Substance: BIOTIN

REACTIONS (3)
  - Pharyngeal swelling [None]
  - Wheezing [None]
  - Dyspnoea [None]

NARRATIVE: CASE EVENT DATE: 20240927
